FAERS Safety Report 13738908 (Version 1)
Quarter: 2017Q3

REPORT INFORMATION
  Report Type: Report from Study
  Country: US (occurrence: US)
  Receive Date: 20170710
  Receipt Date: 20170710
  Transmission Date: 20171127
  Serious: Yes (Hospitalization, Other)
  Sender: FDA-Public Use
  Company Number: US-SAOL THERAPEUTICS-2017SAO00399

PATIENT
  Age: 48 Year
  Sex: Male

DRUGS (3)
  1. LIORESAL [Suspect]
     Active Substance: BACLOFEN
     Dosage: 1001.6 ?G, \DAY
     Route: 037
     Dates: start: 20161212, end: 20170209
  2. LIORESAL [Suspect]
     Active Substance: BACLOFEN
     Dosage: 700.2 ?G, \DAY
     Route: 037
     Dates: start: 20170209
  3. LIORESAL [Suspect]
     Active Substance: BACLOFEN
     Dosage: 900.2 ?G, \DAY
     Route: 037
     Dates: start: 20160926, end: 20161212

REACTIONS (3)
  - Underdose [Recovered/Resolved]
  - Muscle spasticity [Recovered/Resolved]
  - Device damage [Recovered/Resolved]

NARRATIVE: CASE EVENT DATE: 20170209
